FAERS Safety Report 18266424 (Version 1)
Quarter: 2020Q3

REPORT INFORMATION
  Report Type: Spontaneous
  Country: FR (occurrence: FR)
  Receive Date: 20200915
  Receipt Date: 20200915
  Transmission Date: 20201103
  Serious: No
  Sender: FDA-Public Use
  Company Number: FR-BRISTOL-MYERS SQUIBB COMPANY-BMS-2019-025946

PATIENT
  Sex: Female

DRUGS (4)
  1. ORENCIA [Suspect]
     Active Substance: ABATACEPT
     Indication: POLYARTHRITIS
     Dosage: UNK , QWK
     Route: 050
     Dates: start: 20180724, end: 20190313
  2. ORENCIA [Suspect]
     Active Substance: ABATACEPT
     Indication: SJOGREN^S SYNDROME
  3. METHOTREXATE. [Concomitant]
     Active Substance: METHOTREXATE
     Indication: PRODUCT USED FOR UNKNOWN INDICATION
     Dosage: UNK
     Route: 065
  4. ORENCIA [Suspect]
     Active Substance: ABATACEPT
     Indication: SIALOADENITIS

REACTIONS (2)
  - Device malfunction [Unknown]
  - Intentional product use issue [Unknown]
